FAERS Safety Report 8253408-0 (Version None)
Quarter: 2012Q2

REPORT INFORMATION
  Report Type: 
  Country: None (occurrence: None)
  Receive Date: 20120402
  Receipt Date: 20120313
  Transmission Date: 20120825
  Serious: No
  Sender: FDA-Public Use
  Company Number: US-AMGEN-USASP2012016419

PATIENT
  Age: 16 Year
  Sex: Male

DRUGS (1)
  1. ENBREL [Suspect]
     Indication: PSORIASIS
     Dosage: 50 MG, ONCE IN 14 DAYS.
     Dates: start: 20100825

REACTIONS (3)
  - MOUTH INJURY [None]
  - MOUTH HAEMORRHAGE [None]
  - OEDEMA MOUTH [None]
